FAERS Safety Report 25687202 (Version 1)
Quarter: 2025Q3

REPORT INFORMATION
  Report Type: Spontaneous
  Country: US (occurrence: US)
  Receive Date: 20250816
  Receipt Date: 20250816
  Transmission Date: 20251020
  Serious: No
  Sender: SANOFI AVENTIS
  Company Number: US-SA-2025SA239796

PATIENT
  Sex: Male
  Weight: 8.23 kg

DRUGS (6)
  1. DUPIXENT [Suspect]
     Active Substance: DUPILUMAB
     Indication: Eosinophilic oesophagitis
     Dosage: 300 MG, QOW
     Route: 058
  2. CLOTRIMAZOLE [Concomitant]
     Active Substance: CLOTRIMAZOLE
  3. FAMOTIDINE [Concomitant]
     Active Substance: FAMOTIDINE
  4. MELATONIN [Concomitant]
     Active Substance: MELATONIN
  5. TYLENOL [Concomitant]
     Active Substance: ACETAMINOPHEN
  6. AIRBORNE [Concomitant]
     Active Substance: HERBALS\MINERALS\VITAMINS

REACTIONS (4)
  - Road traffic accident [Unknown]
  - Skin wound [Unknown]
  - Skin warm [Unknown]
  - Wound drainage [Unknown]
